FAERS Safety Report 16063888 (Version 1)
Quarter: 2019Q1

REPORT INFORMATION
  Report Type: Spontaneous
  Country: DE (occurrence: DE)
  Receive Date: 20190312
  Receipt Date: 20190312
  Transmission Date: 20190418
  Serious: Yes (Other)
  Sender: FDA-Public Use
  Company Number: DE-MYLANLABS-2019M1021980

PATIENT
  Sex: Male

DRUGS (11)
  1. HUMIRA [Concomitant]
     Active Substance: ADALIMUMAB
     Indication: COLITIS ULCERATIVE
     Dosage: DAILY DOSE: 40 MG MILLGRAM(S) EVERY 14 DAYS
     Route: 058
  2. EZETROL [Suspect]
     Active Substance: EZETIMIBE
     Indication: LIPID METABOLISM DISORDER
     Dosage: DAILY DOSE: 10 MG MILLGRAM(S) EVERY DAYS
     Route: 048
     Dates: start: 20180521, end: 20180524
  3. EFIENT [Concomitant]
     Active Substance: PRASUGREL HYDROCHLORIDE
     Indication: CORONARY ARTERY DISEASE
     Dosage: DAILY DOSE: 10 MG MILLGRAM(S) EVERY DAYS
     Route: 048
  4. ATORVASTATIN [Suspect]
     Active Substance: ATORVASTATIN
     Indication: LIPID METABOLISM DISORDER
     Dosage: DAILY DOSE: 5 MG MILLGRAM(S) EVERY DAYS
     Route: 048
     Dates: start: 20180815, end: 20180821
  5. PRAVASTATIN. [Suspect]
     Active Substance: PRAVASTATIN
     Indication: LIPID METABOLISM DISORDER
     Dosage: DAILY DOSE: 10 MG MILLGRAM(S) EVERY DAYS
     Route: 048
     Dates: start: 20180907, end: 20180914
  6. RAMIPRIL. [Concomitant]
     Active Substance: RAMIPRIL
     Indication: HYPERTENSION
     Dosage: DAILY DOSE: 1.25 MG MILLGRAM(S) EVERY DAYS
     Route: 048
  7. SIMVASTATIN. [Suspect]
     Active Substance: SIMVASTATIN
     Indication: LIPID METABOLISM DISORDER
     Dosage: DAILY DOSE: 10 MG MILLGRAM(S) EVERY DAYS
     Route: 048
     Dates: start: 20180924, end: 20180928
  8. FLUVASTATIN [Suspect]
     Active Substance: FLUVASTATIN SODIUM
     Indication: LIPID METABOLISM DISORDER
     Dosage: DAILY DOSE: 20 MG MILLGRAM(S) EVERY DAYS
     Route: 048
     Dates: start: 20180822, end: 20180831
  9. ASPIRIN. [Concomitant]
     Active Substance: ASPIRIN
     Indication: CORONARY ARTERY DISEASE
     Dosage: DAILY DOSE: 100 MG MILLGRAM(S) EVERY DAYS
     Route: 048
  10. LOVASTATIN. [Suspect]
     Active Substance: LOVASTATIN
     Indication: LIPID METABOLISM DISORDER
     Dosage: DAILY DOSE: 10 MG MILLGRAM(S) EVERY DAYS
     Route: 048
     Dates: start: 20180914, end: 20180919
  11. NEBIVOLOL. [Concomitant]
     Active Substance: NEBIVOLOL
     Indication: HYPERTENSION
     Dosage: DAILY DOSE: 2.5 MG MILLGRAM(S) EVERY DAYS
     Route: 048

REACTIONS (26)
  - Blood pressure increased [Not Recovered/Not Resolved]
  - Night sweats [Not Recovered/Not Resolved]
  - Weight decreased [Not Recovered/Not Resolved]
  - Irritability [Not Recovered/Not Resolved]
  - Nervousness [Not Recovered/Not Resolved]
  - Middle insomnia [Not Recovered/Not Resolved]
  - Musculoskeletal discomfort [Not Recovered/Not Resolved]
  - Depression [Not Recovered/Not Resolved]
  - Major depression [Not Recovered/Not Resolved]
  - Tachyphrenia [Not Recovered/Not Resolved]
  - Muscle tightness [Not Recovered/Not Resolved]
  - Personality change [Not Recovered/Not Resolved]
  - Initial insomnia [Not Recovered/Not Resolved]
  - Anxiety [Not Recovered/Not Resolved]
  - Gastrointestinal pain [Not Recovered/Not Resolved]
  - Heart rate increased [Not Recovered/Not Resolved]
  - Defaecation urgency [Not Recovered/Not Resolved]
  - Memory impairment [Not Recovered/Not Resolved]
  - Muscle spasms [Not Recovered/Not Resolved]
  - Restless legs syndrome [Not Recovered/Not Resolved]
  - Headache [Not Recovered/Not Resolved]
  - Micturition urgency [Not Recovered/Not Resolved]
  - Bursitis [Not Recovered/Not Resolved]
  - Dyspnoea exertional [Not Recovered/Not Resolved]
  - Gross motor delay [Not Recovered/Not Resolved]
  - Coordination abnormal [Not Recovered/Not Resolved]

NARRATIVE: CASE EVENT DATE: 2018
